FAERS Safety Report 4878456-X (Version None)
Quarter: 2005Q4

REPORT INFORMATION
  Report Type: 
  Country: None (occurrence: None)
  Receive Date: 20051209
  Receipt Date: 20050425
  Transmission Date: 20060501
  Serious: Yes (Death)
  Sender: FDA-Public Use
  Company Number: USA-2005-0019967

PATIENT
  Age: 18 Year
  Sex: Male
  Weight: 72.6 kg

DRUGS (3)
  1. OXYCONTIN [Suspect]
  2. ALCOHOL (ETHANOL) [Suspect]
  3. OXYMORPHONE HYDROCHLORIDE [Suspect]

REACTIONS (2)
  - MULTIPLE DRUG OVERDOSE ACCIDENTAL [None]
  - POLYSUBSTANCE ABUSE [None]
